FAERS Safety Report 8623299-4 (Version None)
Quarter: 2012Q3

REPORT INFORMATION
  Report Type: 
  Country: None (occurrence: None)
  Receive Date: 20120827
  Receipt Date: 20120816
  Transmission Date: 20120928
  Serious: Yes (Other)
  Sender: FDA-Public Use
  Company Number: DE-ELI_LILLY_AND_COMPANY-DE201204005976

PATIENT
  Sex: Female

DRUGS (10)
  1. METOPROLOL TARTRATE [Concomitant]
  2. CYMBALTA [Suspect]
     Indication: DEPRESSION
     Dosage: 30 MG, UNKNOWN
     Route: 048
     Dates: start: 20120403, end: 20120413
  3. METFORMIN HCL [Concomitant]
     Dosage: 500 DF, BID
  4. FLUVASTATIN SODIUM [Concomitant]
     Dosage: 8 DF, QD
  5. CYMBALTA [Suspect]
     Dosage: 60 MG, UNKNOWN
     Dates: start: 20120411, end: 20120416
  6. DIOVAN [Concomitant]
     Dosage: 320 DF, EACH MORNING
  7. AMLODIPINE BESYLATE [Concomitant]
     Dosage: UNK, EACH MORNING
  8. AGGRENOX [Concomitant]
     Dosage: UNK, BID
  9. JANUVIA [Concomitant]
     Dosage: 100 DF, EACH MORNING
  10. SODIUM CHLORIDE [Concomitant]
     Dosage: UNK, QID

REACTIONS (3)
  - ALANINE AMINOTRANSFERASE INCREASED [None]
  - GAMMA-GLUTAMYLTRANSFERASE INCREASED [None]
  - ASPARTATE AMINOTRANSFERASE INCREASED [None]
